FAERS Safety Report 13014862 (Version 2)
Quarter: 2017Q1

REPORT INFORMATION
  Report Type: Spontaneous
  Country: GB (occurrence: GB)
  Receive Date: 20161209
  Receipt Date: 20170118
  Transmission Date: 20170428
  Serious: Yes (Other)
  Sender: FDA-Public Use
  Company Number: GB-BAUSCH-BL-2016-030481

PATIENT
  Age: 78 Year

DRUGS (6)
  1. METRONIDAZOLE. [Suspect]
     Active Substance: METRONIDAZOLE
     Indication: ANTIBIOTIC PROPHYLAXIS
     Route: 065
     Dates: start: 201606
  2. TEICOPLANIN [Suspect]
     Active Substance: TEICOPLANIN
     Indication: ANTIBIOTIC PROPHYLAXIS
     Route: 065
     Dates: start: 201606
  3. PROPOFOL. [Suspect]
     Active Substance: PROPOFOL
     Indication: PERIOPERATIVE ANALGESIA
     Route: 065
     Dates: start: 201606
  4. ATRACURIUM [Suspect]
     Active Substance: ATRACURIUM
     Indication: PERIOPERATIVE ANALGESIA
     Route: 065
     Dates: start: 201606
  5. REMIFENTANIL [Suspect]
     Active Substance: REMIFENTANIL
     Indication: PERIOPERATIVE ANALGESIA
     Route: 065
     Dates: start: 201606
  6. METARAMINOL [Suspect]
     Active Substance: METARAMINOL
     Indication: ANTIBIOTIC PROPHYLAXIS
     Route: 065
     Dates: start: 201606

REACTIONS (1)
  - Anaphylactic reaction [Unknown]

NARRATIVE: CASE EVENT DATE: 20160615
